FAERS Safety Report 8841983 (Version 1)
Quarter: 2012Q4

REPORT INFORMATION
  Report Type: Spontaneous
  Country: US (occurrence: None)
  Receive Date: 20121015
  Receipt Date: 20121015
  Transmission Date: 20130627
  Serious: Yes (Other)
  Sender: FDA-Public Use
  Company Number: None

PATIENT
  Age: 8 Year
  Sex: Male
  Weight: 27.7 kg

DRUGS (1)
  1. CEFDINIR [Suspect]
     Indication: SINUS INFECTION
     Route: 048
     Dates: start: 20120927, end: 20120929

REACTIONS (3)
  - Sleep terror [None]
  - Product substitution issue [None]
  - Sinusitis [None]
